FAERS Safety Report 7494352-6 (Version None)
Quarter: 2011Q2

REPORT INFORMATION
  Report Type: 
  Country: None (occurrence: None)
  Receive Date: 20110520
  Receipt Date: 20110509
  Transmission Date: 20111010
  Serious: Yes (Other)
  Sender: FDA-Public Use
  Company Number: HK-MERCK-1105USA01661

PATIENT
  Age: 63 Year
  Sex: Female

DRUGS (4)
  1. ZOCOR [Suspect]
     Route: 048
  2. ZOCOR [Suspect]
     Route: 048
  3. DILTIAZEM HYDROCHLORIDE [Suspect]
     Indication: HYPERTENSION
     Route: 065
  4. ENALAPRIL MALEATE [Concomitant]
     Indication: HYPERTENSION
     Route: 065

REACTIONS (2)
  - MYOPATHY [None]
  - DRUG INTERACTION [None]
